FAERS Safety Report 21544980 (Version 3)
Quarter: 2023Q1

REPORT INFORMATION
  Report Type: Report from Study
  Country: US (occurrence: US)
  Receive Date: 20221102
  Receipt Date: 20230217
  Transmission Date: 20230418
  Serious: Yes (Other)
  Sender: FDA-Public Use
  Company Number: US-ABBVIE-22K-163-4407620-00

PATIENT
  Age: 55 Year
  Sex: Female

DRUGS (5)
  1. HUMIRA [Suspect]
     Active Substance: ADALIMUMAB
     Indication: Rheumatoid arthritis
     Dosage: CITRATE FREE
     Route: 058
     Dates: start: 20211229, end: 20221217
  2. HUMIRA [Suspect]
     Active Substance: ADALIMUMAB
     Dosage: CITRATE FREE
     Route: 058
  3. HUMIRA [Suspect]
     Active Substance: ADALIMUMAB
     Dosage: CF
     Route: 058
  4. MODERNA COVID-19 VACCINE [Concomitant]
     Active Substance: ELASOMERAN
     Indication: COVID-19 immunisation
     Dosage: ONE IN ONCE? THIRD DOSE OR BOOSTER DOSE
     Route: 030
     Dates: start: 20211221, end: 20211221
  5. MODERNA COVID-19 VACCINE [Concomitant]
     Active Substance: ELASOMERAN
     Indication: COVID-19 immunisation
     Dosage: ONCE IN ONCE
     Route: 030
     Dates: start: 20210508, end: 20210508

REACTIONS (12)
  - Eye operation [Recovered/Resolved]
  - Ventricular extrasystoles [Not Recovered/Not Resolved]
  - COVID-19 [Recovering/Resolving]
  - Rheumatoid arthritis [Not Recovered/Not Resolved]
  - Eye infection [Recovering/Resolving]
  - Illness [Unknown]
  - Injection site bruising [Not Recovered/Not Resolved]
  - Eye swelling [Recovered/Resolved]
  - Pain [Not Recovered/Not Resolved]
  - Therapeutic product effect decreased [Not Recovered/Not Resolved]
  - Mobility decreased [Not Recovered/Not Resolved]
  - Gait disturbance [Not Recovered/Not Resolved]

NARRATIVE: CASE EVENT DATE: 20200909
